FAERS Safety Report 8168421-1 (Version None)
Quarter: 2012Q1

REPORT INFORMATION
  Report Type: 
  Country: None (occurrence: None)
  Receive Date: 20120227
  Receipt Date: 20120217
  Transmission Date: 20120608
  Serious: Yes (Hospitalization, Other)
  Sender: FDA-Public Use
  Company Number: US-BAYER-2011-079356

PATIENT
  Age: 8 Year
  Sex: Female
  Weight: 97 kg

DRUGS (8)
  1. YASMIN [Suspect]
     Indication: MENORRHAGIA
     Dosage: UNK
     Dates: start: 20090101
  2. HYDROXYZINE [Concomitant]
  3. ZOLOFT [Concomitant]
  4. POLYETHYL. GLYC. W/POTAS. CHLOR./SOD. BICARB. [Concomitant]
  5. DROSPIRENONE AND ETHINYL ESTRADIOL [Suspect]
     Indication: MENORRHAGIA
     Dosage: UNK
     Dates: start: 20080101, end: 20110101
  6. FLOVENT [Concomitant]
  7. VENTOLIN [Concomitant]
  8. YAZ [Suspect]
     Indication: MENORRHAGIA
     Dosage: UNK
     Dates: start: 20090101

REACTIONS (1)
  - CHOLECYSTECTOMY [None]
